FAERS Safety Report 6161650-8 (Version None)
Quarter: 2009Q2

REPORT INFORMATION
  Report Type: 
  Country: None (occurrence: None)
  Receive Date: 20090421
  Receipt Date: 20090417
  Transmission Date: 20091009
  Serious: No
  Sender: FDA-Public Use
  Company Number: US-B.I. PHARMACEUTICALS,INC./RIDGEFIELD-2009-BP-03657BP

PATIENT
  Sex: Female

DRUGS (4)
  1. SPIRIVA [Suspect]
     Indication: EMPHYSEMA
     Dosage: 18MCG
     Route: 055
     Dates: start: 20070611
  2. PRILOSEC [Concomitant]
     Indication: GASTROOESOPHAGEAL REFLUX DISEASE
  3. LEVOXYL [Concomitant]
     Indication: THYROID DISORDER
  4. LISINOPRIL [Concomitant]
     Dosage: 5MG

REACTIONS (4)
  - CATARACT [None]
  - HAEMOGLOBIN DECREASED [None]
  - HYPERTENSION [None]
  - ULCER HAEMORRHAGE [None]
